FAERS Safety Report 20921214 (Version 1)
Quarter: 2022Q2

REPORT INFORMATION
  Report Type: Spontaneous
  Country: US (occurrence: US)
  Receive Date: 20220606
  Receipt Date: 20220606
  Transmission Date: 20220721
  Serious: No
  Sender: FDA-Public Use
  Company Number: US-SEPTODONT-2021006191

PATIENT
  Sex: Female

DRUGS (1)
  1. ARTICADENT [Suspect]
     Active Substance: ARTICAINE HYDROCHLORIDE\EPINEPHRINE BITARTRATE
     Indication: Tooth extraction
     Dosage: ONE TO TWO CARPULES
     Route: 004

REACTIONS (6)
  - Malaise [Unknown]
  - Dizziness [Unknown]
  - Lethargy [Unknown]
  - Asthenia [Unknown]
  - Heart rate increased [Unknown]
  - Blood pressure increased [Unknown]
